FAERS Safety Report 14150607 (Version 1)
Quarter: 2017Q4

REPORT INFORMATION
  Report Type: Spontaneous
  Country: GB (occurrence: GB)
  Receive Date: 20171101
  Receipt Date: 20171101
  Transmission Date: 20180321
  Serious: Yes (Life-Threatening, Other)
  Sender: FDA-Public Use
  Company Number: GB-INTERNATIONAL MEDICATION SYSTEMS, LIMITED-2033002

PATIENT
  Age: 75 Year
  Sex: Male
  Weight: 77.56 kg

DRUGS (1)
  1. MORPHINE 5 MG/5 ML [Suspect]
     Active Substance: MORPHINE
     Indication: PERIOPERATIVE ANALGESIA

REACTIONS (1)
  - Angioedema [Recovered/Resolved]

NARRATIVE: CASE EVENT DATE: 20151116
